FAERS Safety Report 8045305 (Version 6)
Quarter: 2012Q4

REPORT INFORMATION
  Report Type: 
  Country: US (occurrence: US)
  Receive Date: 20110720
  Receipt Date: 20121112
  Transmission Date: 20130627
  Serious: Yes (Other)
  Sender: FDA-Public Use
  Company Number: US-ASTRAZENECA-2011SE41704

PATIENT
  Age: 64 Year
  Sex: Female

DRUGS (3)
  1. NEXIUM [Suspect]
     Route: 048
  2. TOPROL XL [Suspect]
     Route: 048
  3. DUOGESIC [Concomitant]

REACTIONS (6)
  - Rotator cuff syndrome [Unknown]
  - Foot fracture [Unknown]
  - Limb injury [Unknown]
  - Joint injury [Unknown]
  - Fall [Unknown]
  - Confusional state [Unknown]
